FAERS Safety Report 7547307-7 (Version None)
Quarter: 2011Q2

REPORT INFORMATION
  Report Type: 
  Country: None (occurrence: None)
  Receive Date: 20110614
  Receipt Date: 20110606
  Transmission Date: 20111010
  Serious: Yes (Death)
  Sender: FDA-Public Use
  Company Number: NL-TEVA-285150ISR

PATIENT
  Sex: Female

DRUGS (1)
  1. LITHIUM [Suspect]

REACTIONS (3)
  - COMA [None]
  - ATRIOVENTRICULAR BLOCK [None]
  - SHOCK [None]
